FAERS Safety Report 7396518-2 (Version None)
Quarter: 2011Q2

REPORT INFORMATION
  Report Type: 
  Country: None (occurrence: None)
  Receive Date: 20110406
  Receipt Date: 20110330
  Transmission Date: 20111010
  Serious: Yes (Hospitalization)
  Sender: FDA-Public Use
  Company Number: FR-BRISTOL-MYERS SQUIBB COMPANY-15644792

PATIENT
  Age: 70 Year
  Sex: Male
  Weight: 103 kg

DRUGS (1)
  1. IPILIMUMAB [Suspect]
     Indication: MALIGNANT MELANOMA
     Dosage: NO OF INF:3 THERAPY DATES:14JAN11
     Route: 042

REACTIONS (4)
  - RENAL FAILURE [None]
  - DIARRHOEA [None]
  - LUNG INFECTION [None]
  - DEHYDRATION [None]
